FAERS Safety Report 16612772 (Version 1)
Quarter: 2019Q3

REPORT INFORMATION
  Report Type: Spontaneous
  Country: US (occurrence: US)
  Receive Date: 20190722
  Receipt Date: 20190722
  Transmission Date: 20191004
  Serious: No
  Sender: FDA-Public Use
  Company Number: None

PATIENT
  Age: 62 Year
  Sex: Male
  Weight: 59.4 kg

DRUGS (9)
  1. FENOFIBRATE. [Concomitant]
     Active Substance: FENOFIBRATE
  2. VITAMIN D [Concomitant]
     Active Substance: VITAMIN D NOS
  3. ZOMIG [Concomitant]
     Active Substance: ZOLMITRIPTAN
  4. TROKENDI XR [Suspect]
     Active Substance: TOPIRAMATE
     Indication: MIGRAINE PROPHYLAXIS
     Dosage: ?          QUANTITY:90 CAPSULE(S);?
     Route: 048
     Dates: start: 20190610
  5. PROLIA [Concomitant]
     Active Substance: DENOSUMAB
  6. AIMOVIG [Concomitant]
     Active Substance: ERENUMAB-AOOE
  7. BYSTOLIC [Concomitant]
     Active Substance: NEBIVOLOL HYDROCHLORIDE
  8. CRESTOR [Concomitant]
     Active Substance: ROSUVASTATIN CALCIUM
  9. VITAMIN K2 [Concomitant]
     Active Substance: MENAQUINONE 6

REACTIONS (4)
  - Pollakiuria [None]
  - Micturition urgency [None]
  - Male orgasmic disorder [None]
  - Defaecation urgency [None]

NARRATIVE: CASE EVENT DATE: 20190722
